FAERS Safety Report 18687791 (Version 1)
Quarter: 2020Q4

REPORT INFORMATION
  Report Type: Spontaneous
  Country: US (occurrence: US)
  Receive Date: 20201230
  Receipt Date: 20201230
  Transmission Date: 20210114
  Serious: No
  Sender: FDA-Public Use
  Company Number: None

PATIENT
  Age: 43 Year
  Sex: Female

DRUGS (4)
  1. COSENTYX [Suspect]
     Active Substance: SECUKINUMAB
     Indication: PSORIATIC ARTHROPATHY
     Dosage: ?          OTHER FREQUENCY:EVERY 4 WEEKS;?
     Route: 059
     Dates: start: 20200513
  2. AUG METAMET OINTMENT 0.05% [Concomitant]
  3. COSENTYX [Suspect]
     Active Substance: SECUKINUMAB
     Indication: PSORIASIS
     Dosage: ?          OTHER FREQUENCY:EVERY 4 WEEKS;?
     Route: 059
     Dates: start: 20200513
  4. OTEZLA [Suspect]
     Active Substance: APREMILAST
     Dates: start: 20201229

REACTIONS (2)
  - Psoriatic arthropathy [None]
  - Psoriasis [None]

NARRATIVE: CASE EVENT DATE: 20201130
